FAERS Safety Report 19052960 (Version 1)
Quarter: 2021Q1

REPORT INFORMATION
  Report Type: Spontaneous
  Country: AU (occurrence: AU)
  Receive Date: 20210324
  Receipt Date: 20210324
  Transmission Date: 20210420
  Serious: Yes (Other)
  Sender: FDA-Public Use
  Company Number: AU-TAKEDA-2021TUS017597

PATIENT
  Sex: Male

DRUGS (4)
  1. SALOFALK GR [Concomitant]
     Indication: PRODUCT USED FOR UNKNOWN INDICATION
  2. MEZAVANT [Suspect]
     Active Substance: MESALAMINE
     Indication: COLITIS ULCERATIVE
     Dosage: 4.8 GRAM
     Route: 065
  3. 6?MERCAPTOPURINE MONOHYDRATE [Concomitant]
     Active Substance: MERCAPTOPURINE
     Indication: PRODUCT USED FOR UNKNOWN INDICATION
  4. ENEMA BALKAN [Concomitant]
     Indication: PRODUCT USED FOR UNKNOWN INDICATION

REACTIONS (10)
  - Colitis ulcerative [Unknown]
  - C-reactive protein abnormal [Unknown]
  - Haemoglobin abnormal [Unknown]
  - Defaecation urgency [Unknown]
  - Faecal calprotectin increased [Unknown]
  - Steroid dependence [Unknown]
  - Rectal haemorrhage [Unknown]
  - Diarrhoea [Unknown]
  - Treatment noncompliance [Unknown]
  - Off label use [Unknown]
